FAERS Safety Report 8172444-6 (Version None)
Quarter: 2012Q1

REPORT INFORMATION
  Report Type: 
  Country: None (occurrence: None)
  Receive Date: 20120229
  Receipt Date: 20120215
  Transmission Date: 20120608
  Serious: Yes (Hospitalization)
  Sender: FDA-Public Use
  Company Number: RU-RANBAXY-2012R3-52848

PATIENT

DRUGS (1)
  1. CIPROFLOXACIN + TINIDAZOLE [Suspect]
     Indication: PERIOSTITIS
     Dosage: 500/600MG,TID
     Route: 048
     Dates: start: 20120110, end: 20120112

REACTIONS (2)
  - CONDITION AGGRAVATED [None]
  - DRUG INEFFECTIVE [None]
